FAERS Safety Report 7335414-3 (Version None)
Quarter: 2011Q1

REPORT INFORMATION
  Report Type: 
  Country: None (occurrence: None)
  Receive Date: 20110307
  Receipt Date: 20110302
  Transmission Date: 20110831
  Serious: Yes (Life-Threatening, Hospitalization)
  Sender: FDA-Public Use
  Company Number: PHHY2011NL16723

PATIENT
  Sex: Female
  Weight: 62 kg

DRUGS (1)
  1. BISOPROLOL FUMARATE SANDOZ [Suspect]
     Indication: HYPERTENSION
     Dosage: 1 DF, QD
     Route: 048
     Dates: start: 20071211

REACTIONS (3)
  - DYSPNOEA [None]
  - CARDIAC DISORDER [None]
  - DYSPHONIA [None]
